FAERS Safety Report 16721776 (Version 1)
Quarter: 2019Q3

REPORT INFORMATION
  Report Type: Spontaneous
  Country: ZA (occurrence: ZA)
  Receive Date: 20190820
  Receipt Date: 20190820
  Transmission Date: 20191005
  Serious: Yes (Hospitalization)
  Sender: FDA-Public Use
  Company Number: ZA-GLAXOSMITHKLINE-ZA2019EME148461

PATIENT

DRUGS (7)
  1. AMLOC (AMLODIPINE) [Suspect]
     Active Substance: AMLODIPINE BESYLATE
     Indication: HYPERTENSION
     Dosage: 5 MG, UNK
     Route: 048
  2. FOXAIR [Suspect]
     Active Substance: FLUTICASONE PROPIONATE\SALMETEROL XINAFOATE
     Indication: ASTHMA
     Dosage: UNK (50/500 ?G )
     Route: 048
  3. CIPLAVASC [Suspect]
     Active Substance: AMLODIPINE BESYLATE
     Indication: HYPERTENSION
     Dosage: 5 MG, UNK
     Route: 048
  4. PANTOCID [PANTOPRAZOLE] [Suspect]
     Active Substance: PANTOPRAZOLE
     Indication: ULCER
     Dosage: 20 MG, UNK
     Route: 048
  5. FLOMIST [Suspect]
     Active Substance: FLUTICASONE PROPIONATE
     Indication: SEASONAL ALLERGY
     Dosage: 50 ?G, UNK
  6. ZARTAN (CEFALEXIN MONOHYDRATE) [Suspect]
     Active Substance: CEPHALEXIN
     Indication: HYPERTENSION
     Dosage: 100 MG, UNK
     Route: 048
  7. LOZAAN CO [Suspect]
     Active Substance: HYDROCHLOROTHIAZIDE\LOSARTAN POTASSIUM
     Indication: HYPERTENSION
     Dosage: 100 MG, UNK
     Route: 048

REACTIONS (1)
  - Hypertension [Unknown]
